FAERS Safety Report 5398039-5 (Version None)
Quarter: 2007Q3

REPORT INFORMATION
  Report Type: 
  Country: None (occurrence: None)
  Receive Date: 20070726
  Receipt Date: 20070717
  Transmission Date: 20080115
  Serious: Yes (Hospitalization, Other)
  Sender: FDA-Public Use
  Company Number: DE-ABBOTT-06P-062-0340051-00

PATIENT
  Age: 69 Year
  Sex: Female

DRUGS (8)
  1. HUMIRA [Suspect]
     Indication: DRUG USE FOR UNKNOWN INDICATION
     Dates: start: 20061001
  2. HUMIRA [Suspect]
     Dates: start: 20060501, end: 20061001
  3. HUMIRA [Suspect]
     Dates: start: 20051201, end: 20051201
  4. HUMIRA [Suspect]
  5. METHOTREXATE [Suspect]
     Indication: DRUG USE FOR UNKNOWN INDICATION
     Dates: start: 19971001, end: 20051201
  6. METHOTREXATE [Suspect]
  7. PREDNISOLONE [Concomitant]
     Indication: DRUG USE FOR UNKNOWN INDICATION
     Dates: start: 20061101
  8. DICLOFENAC SODIUM [Concomitant]
     Indication: DRUG USE FOR UNKNOWN INDICATION
     Dates: start: 20061101

REACTIONS (3)
  - ARTHRODESIS [None]
  - FOOT OPERATION [None]
  - PULMONARY GRANULOMA [None]
